FAERS Safety Report 7735188 (Version 4)
Quarter: 2014Q1

REPORT INFORMATION
  Report Type: Spontaneous
  Country: US (occurrence: US)
  Receive Date: 20101223
  Receipt Date: 20140114
  Transmission Date: 20141002
  Serious: Yes (Life-Threatening, Hospitalization, Other)
  Sender: FDA-Public Use
  Company Number: US-BAYER-2010-004773

PATIENT
  Age: 34 Year
  Sex: Female
  Weight: 79.37 kg

DRUGS (2)
  1. YAZ [Suspect]
     Indication: CONTRACEPTION
  2. YAZ [Suspect]
     Indication: MENSTRUATION IRREGULAR

REACTIONS (7)
  - Gallbladder non-functioning [Unknown]
  - Cholecystitis acute [None]
  - Fatigue [None]
  - Asthenia [None]
  - Pain [None]
  - Anxiety [None]
  - Organ failure [None]
